FAERS Safety Report 4771465-0 (Version None)
Quarter: 2005Q3

REPORT INFORMATION
  Report Type: 
  Country: None (occurrence: None)
  Receive Date: 20050915
  Receipt Date: 20050908
  Transmission Date: 20060218
  Serious: Yes (Other)
  Sender: FDA-Public Use
  Company Number: 2005077352

PATIENT
  Age: 88 Year
  Sex: Female
  Weight: 54.4316 kg

DRUGS (7)
  1. NEURONTIN [Suspect]
     Indication: CONVULSION
     Dosage: 1000 MG (250 MG, 4 IN 1 D), ORAL
     Route: 048
     Dates: start: 20041112
  2. ARICEPT [Suspect]
     Indication: DEMENTIA ALZHEIMER'S TYPE
     Dosage: 5 MG (5 MG, 1 IN 1 D), ORAL
     Route: 048
     Dates: start: 20040101
  3. ARICEPT [Suspect]
     Indication: VASCULAR DEMENTIA
     Dosage: 5 MG (5 MG, 1 IN 1 D), ORAL
     Route: 048
     Dates: start: 20040101
  4. DILANTIN [Suspect]
     Indication: ILL-DEFINED DISORDER
  5. KEPPRA [Suspect]
     Indication: ILL-DEFINED DISORDER
  6. ZOLOFT [Concomitant]
  7. XANAX [Concomitant]

REACTIONS (5)
  - AGITATION [None]
  - DEPRESSION [None]
  - GRAND MAL CONVULSION [None]
  - PARTIAL SEIZURES [None]
  - POOR QUALITY DRUG ADMINISTERED [None]
